FAERS Safety Report 14307351 (Version 1)
Quarter: 2017Q4

REPORT INFORMATION
  Report Type: Spontaneous
  Country: US (occurrence: US)
  Receive Date: 20171220
  Receipt Date: 20171220
  Transmission Date: 20180321
  Serious: Yes (Hospitalization)
  Sender: FDA-Public Use
  Company Number: US-PFIZER INC-2017536546

PATIENT
  Age: 54 Year
  Sex: Female
  Weight: 77.11 kg

DRUGS (2)
  1. FLEXERIL [Concomitant]
     Active Substance: CYCLOBENZAPRINE HYDROCHLORIDE
     Dosage: UNK
  2. LYRICA [Suspect]
     Active Substance: PREGABALIN
     Indication: HERPES ZOSTER
     Dosage: UNK, (60 PILLS, POSSIBLE 2 A DAY)
     Route: 048
     Dates: start: 201712

REACTIONS (11)
  - Back pain [Not Recovered/Not Resolved]
  - Pain [Unknown]
  - Blood glucose fluctuation [Unknown]
  - Gait disturbance [Unknown]
  - Pallor [Unknown]
  - Dysarthria [Unknown]
  - Intentional product misuse [Not Recovered/Not Resolved]
  - Energy increased [Unknown]
  - Pancreatic disorder [Unknown]
  - Withdrawal syndrome [Unknown]
  - Euphoric mood [Unknown]

NARRATIVE: CASE EVENT DATE: 20171208
